FAERS Safety Report 10110372 (Version 1)
Quarter: 2014Q2

REPORT INFORMATION
  Report Type: Spontaneous
  Country: GB (occurrence: None)
  Receive Date: 20140423
  Receipt Date: 20140423
  Transmission Date: 20141212
  Serious: Yes (Other)
  Sender: FDA-Public Use
  Company Number: 2014RN000011

PATIENT
  Sex: 0

DRUGS (2)
  1. ZOVIRAX (ACYCLOVIR) TABLET [Suspect]
     Indication: HERPES ZOSTER
  2. ZOVIRAX (ACYCLOVIR) TABLET [Suspect]
     Indication: PROPHYLAXIS

REACTIONS (1)
  - Pancreatitis [None]
